FAERS Safety Report 8598286-5 (Version None)
Quarter: 2012Q3

REPORT INFORMATION
  Report Type: 
  Country: None (occurrence: None)
  Receive Date: 20120816
  Receipt Date: 20120719
  Transmission Date: 20120928
  Serious: Yes (Other)
  Sender: FDA-Public Use
  Company Number: CN-ASTRAZENECA-2012SE57508

PATIENT
  Age: 416 Day
  Sex: Male
  Weight: 13 kg

DRUGS (4)
  1. TERBUTALINE SULFATE [Concomitant]
     Indication: ALVEOLITIS ALLERGIC
     Route: 055
     Dates: start: 20100118, end: 20100119
  2. PULMICORT [Suspect]
     Indication: ALVEOLITIS ALLERGIC
     Route: 055
     Dates: start: 20100118, end: 20100119
  3. CEFMETAZOLE SODIUM [Concomitant]
     Indication: ALVEOLITIS ALLERGIC
     Route: 041
     Dates: start: 20100118, end: 20100119
  4. DIPROPHYLLINE [Concomitant]
     Indication: ALVEOLITIS ALLERGIC
     Route: 041
     Dates: start: 20100118, end: 20100119

REACTIONS (6)
  - CYANOSIS [None]
  - DYSPNOEA [None]
  - TACHYCARDIA [None]
  - DIARRHOEA [None]
  - OLIGURIA [None]
  - MENTAL DISORDER DUE TO A GENERAL MEDICAL CONDITION [None]
